FAERS Safety Report 4823652-0 (Version None)
Quarter: 2005Q4

REPORT INFORMATION
  Report Type: 
  Country: None (occurrence: None)
  Receive Date: 20051109
  Receipt Date: 20051031
  Transmission Date: 20060501
  Serious: Yes (Hospitalization)
  Sender: FDA-Public Use
  Company Number: FR-GLAXOSMITHKLINE-B0399245A

PATIENT
  Age: 77 Year
  Sex: Male

DRUGS (13)
  1. AUGMENTIN '125' [Suspect]
     Indication: SUPERINFECTION
     Dosage: 2G PER DAY
     Dates: start: 20050914, end: 20050922
  2. HEPARINE CHOAY [Suspect]
     Route: 042
     Dates: start: 20050914, end: 20051003
  3. OFLOCET [Suspect]
     Indication: SUPERINFECTION
     Dosage: 200MG THREE TIMES PER WEEK
     Route: 042
     Dates: start: 20050914, end: 20050927
  4. MOPRAL [Suspect]
     Dosage: 20MG PER DAY
     Route: 042
     Dates: start: 20050918, end: 20050928
  5. OFLOCET [Concomitant]
     Route: 048
     Dates: start: 20050928, end: 20051005
  6. MOPRAL 20 MG [Concomitant]
     Route: 048
     Dates: start: 20050929, end: 20051006
  7. DIGOXIN [Concomitant]
  8. ATARAX 25 [Concomitant]
  9. SECTRAL [Concomitant]
     Dosage: 200MG PER DAY
  10. VASTAREL [Concomitant]
     Dosage: 35MG TWICE PER DAY
  11. LOVENOX [Concomitant]
  12. IOBITRIDOL [Concomitant]
     Indication: ARTERIOGRAM
     Dates: start: 20050909, end: 20050909
  13. PROPOFOL [Concomitant]

REACTIONS (2)
  - VASCULAR PURPURA [None]
  - VASCULITIS [None]
